FAERS Safety Report 13455692 (Version 2)
Quarter: 2017Q2

REPORT INFORMATION
  Report Type: Spontaneous
  Country: US (occurrence: US)
  Receive Date: 20170418
  Receipt Date: 20170427
  Transmission Date: 20170830
  Serious: Yes (Death, Other)
  Sender: FDA-Public Use
  Company Number: US-ACTELION-A-NJ2017-152568

PATIENT
  Age: 66 Year
  Sex: Male

DRUGS (1)
  1. TRACLEER [Suspect]
     Active Substance: BOSENTAN
     Indication: PULMONARY ARTERIAL HYPERTENSION
     Dosage: 125 MG, BID
     Route: 048
     Dates: start: 20150727, end: 20170324

REACTIONS (4)
  - Hepatic cirrhosis [Fatal]
  - Respiratory failure [Not Recovered/Not Resolved]
  - Pulmonary arterial hypertension [Fatal]
  - Right ventricular failure [Fatal]
